FAERS Safety Report 23836860 (Version 2)
Quarter: 2024Q3

REPORT INFORMATION
  Report Type: Spontaneous
  Country: US (occurrence: US)
  Receive Date: 20240509
  Receipt Date: 20240709
  Transmission Date: 20241017
  Serious: Yes (Other)
  Sender: OTSUKA
  Company Number: US-OTSUKA-2024_012899

PATIENT

DRUGS (1)
  1. ABILIFY MAINTENA [Suspect]
     Active Substance: ARIPIPRAZOLE
     Indication: Schizophrenia
     Dosage: UNK (EVERY 28 DAYS)
     Route: 065
     Dates: start: 202312

REACTIONS (2)
  - Psychotic symptom [Unknown]
  - Therapeutic response shortened [Unknown]
